FAERS Safety Report 8936344 (Version 1)
Quarter: 2012Q4

REPORT INFORMATION
  Report Type: 
  Country: US (occurrence: US)
  Receive Date: 20121130
  Receipt Date: 20121130
  Transmission Date: 20130627
  Serious: No
  Sender: FDA-Public Use
  Company Number: US-ABBOTT-12P-163-1002323-00

PATIENT
  Age: 54 Year
  Sex: Male
  Weight: 97.61 kg

DRUGS (4)
  1. ANDROGEL [Suspect]
     Indication: BLOOD TESTOSTERONE DECREASED
     Dates: start: 20121016, end: 20121021
  2. GABAPENTIN [Concomitant]
     Indication: TYPE 2 DIABETES MELLITUS
  3. METFORMIN [Concomitant]
     Indication: TYPE 2 DIABETES MELLITUS
  4. VITAMINS [Concomitant]
     Indication: PRODUCT USED FOR UNKNOWN INDICATION

REACTIONS (2)
  - Mass [Not Recovered/Not Resolved]
  - Drug ineffective [Not Recovered/Not Resolved]
